FAERS Safety Report 5441235-9 (Version None)
Quarter: 2007Q3

REPORT INFORMATION
  Report Type: 
  Country: None (occurrence: None)
  Receive Date: 20070901
  Receipt Date: 20070821
  Transmission Date: 20080115
  Serious: Yes (Other)
  Sender: FDA-Public Use
  Company Number: JP-PFIZER INC-2007070964

PATIENT
  Age: 65 Year
  Sex: Male

DRUGS (3)
  1. LIPITOR [Suspect]
     Indication: HYPERLIPIDAEMIA
     Dosage: DAILY DOSE:10MG-FREQ:DAILY
     Route: 048
     Dates: start: 20070711, end: 20070810
  2. OLMETEC [Suspect]
     Indication: HYPERTENSION
     Dosage: DAILY DOSE:10MG-FREQ:DAILY
     Route: 048
     Dates: start: 20070711, end: 20070810
  3. PRORENAL [Suspect]
     Dosage: DAILY DOSE:5MCG-FREQ:DAILY
     Route: 048
     Dates: start: 20070711, end: 20070810

REACTIONS (1)
  - LIVER DISORDER [None]
